FAERS Safety Report 13011241 (Version 1)
Quarter: 2016Q4

REPORT INFORMATION
  Report Type: Spontaneous
  Country: DE (occurrence: DE)
  Receive Date: 20161208
  Receipt Date: 20161208
  Transmission Date: 20170207
  Serious: Yes (Disabling)
  Sender: FDA-Public Use
  Company Number: DE-B.I. PHARMACEUTICALS,INC./RIDGEFIELD-2016-BI-084174

PATIENT
  Age: 42 Year
  Sex: Female
  Weight: 50 kg

DRUGS (5)
  1. TILIDIN [Concomitant]
     Active Substance: NALOXONE HYDROCHLORIDE\TILIDINE HYDROCHLORIDE
     Indication: PRODUCT USED FOR UNKNOWN INDICATION
     Route: 065
  2. IBUPROFEN. [Concomitant]
     Active Substance: IBUPROFEN
     Indication: PRODUCT USED FOR UNKNOWN INDICATION
     Route: 065
  3. PANTOPRAZOL [Concomitant]
     Active Substance: PANTOPRAZOLE SODIUM
     Indication: PRODUCT USED FOR UNKNOWN INDICATION
     Route: 065
  4. MOBEC [Suspect]
     Active Substance: MELOXICAM
     Indication: RHEUMATIC DISORDER
  5. MOBEC [Suspect]
     Active Substance: MELOXICAM
     Indication: ARTHRITIS
     Route: 065
     Dates: start: 2014

REACTIONS (2)
  - Tendon pain [Not Recovered/Not Resolved]
  - Sleep disorder [Unknown]
